FAERS Safety Report 8165814-3 (Version None)
Quarter: 2012Q1

REPORT INFORMATION
  Report Type: 
  Country: None (occurrence: None)
  Receive Date: 20120227
  Receipt Date: 20120222
  Transmission Date: 20120608
  Serious: Yes (Life-Threatening, Hospitalization)
  Sender: FDA-Public Use
  Company Number: US-BAYER-2011-067579

PATIENT
  Age: 45 Year
  Sex: Female

DRUGS (17)
  1. YAZ [Suspect]
     Indication: PREMENSTRUAL SYNDROME
  2. CITALOPRAM HYDROBROMIDE [Concomitant]
  3. CYCLOBENZAPRINE [Concomitant]
  4. QUIXIN [Concomitant]
  5. YAZ [Suspect]
     Indication: POLYCYSTIC OVARIES
  6. VITAMIN B-12 [Concomitant]
  7. YAZ [Suspect]
     Indication: ACNE
     Dosage: UNK
     Route: 048
     Dates: start: 20090901, end: 20091201
  8. EFFEXOR [Concomitant]
  9. ACYCLOVIR [Concomitant]
  10. THEOPHYLLINE [Concomitant]
  11. TRAMADOL HCL [Concomitant]
  12. ERYTHROMYCIN [Concomitant]
  13. THYROID TAB [Concomitant]
  14. KLONOPIN [Concomitant]
  15. YAZ [Suspect]
  16. MAXAIR [Concomitant]
  17. MEDROL [Concomitant]

REACTIONS (5)
  - ANHEDONIA [None]
  - PAIN [None]
  - ANXIETY [None]
  - INJURY [None]
  - DEEP VEIN THROMBOSIS [None]
